FAERS Safety Report 21057843 (Version 1)
Quarter: 2022Q3

REPORT INFORMATION
  Report Type: Spontaneous
  Country: US (occurrence: None)
  Receive Date: 20220707
  Receipt Date: 20220707
  Transmission Date: 20221027
  Serious: Yes (Other)
  Sender: FDA-Public Use
  Company Number: None

PATIENT
  Age: 75 Year
  Sex: Female

DRUGS (16)
  1. AMBRISENTAN [Suspect]
     Active Substance: AMBRISENTAN
     Indication: Pulmonary arterial hypertension
     Dosage: FREQUENCY : DAILY;?
     Route: 048
     Dates: start: 20220509
  2. SILDENAFIL [Concomitant]
  3. ALVESCO HFA [Concomitant]
  4. PANTOPRAZOLE [Concomitant]
  5. SPIRIVA RESPIMAT [Concomitant]
  6. APIXABAN [Concomitant]
     Active Substance: APIXABAN
  7. PROGESTERONE MICRONIZED [Concomitant]
  8. VOLTAREN TOP GEL [Concomitant]
  9. ATORVASTATIN [Concomitant]
  10. FUROSEMIDE [Concomitant]
  11. ASCORBIC ACID\IRON [Concomitant]
     Active Substance: ASCORBIC ACID\IRON
  12. MAGNESIUM OXIDE [Concomitant]
  13. ACETAMINOPHEN [Concomitant]
  14. COENZYME Q-10 [Concomitant]
  15. MVI-MINERALS [Concomitant]
  16. GLUCOSAMINE + CHONDROITIN [Concomitant]

REACTIONS (2)
  - Urinary tract infection [None]
  - Cardiac failure congestive [None]

NARRATIVE: CASE EVENT DATE: 20220630
